FAERS Safety Report 9539114 (Version 8)
Quarter: 2014Q2

REPORT INFORMATION
  Report Type: Spontaneous
  Country: US (occurrence: US)
  Receive Date: 20130920
  Receipt Date: 20140509
  Transmission Date: 20141212
  Serious: Yes (Hospitalization, Disabling, Other)
  Sender: FDA-Public Use
  Company Number: US-009507513-1205USA04818

PATIENT
  Sex: Female
  Weight: 71.2 kg

DRUGS (14)
  1. FOSAMAX [Suspect]
     Indication: OSTEOPOROSIS
     Dosage: UNK
     Route: 048
     Dates: start: 1997
  2. FOSAMAX [Suspect]
     Indication: BONE LOSS
     Dosage: 70 MG, QW
     Route: 048
     Dates: start: 20010119, end: 200111
  3. FOSAMAX [Suspect]
     Dosage: 70 MG, QW
     Route: 048
     Dates: start: 20020316, end: 20020419
  4. ACTONEL [Suspect]
     Indication: OSTEOPOROSIS
     Dosage: 35 MG, UNK
     Dates: start: 20040927, end: 20050705
  5. ACTONEL [Suspect]
     Indication: BONE LOSS
  6. AREDIA [Suspect]
     Indication: OSTEOPOROSIS
     Dosage: UNK
     Dates: start: 20050831, end: 20051207
  7. AREDIA [Suspect]
     Indication: BONE LOSS
  8. ZOMETA [Suspect]
     Indication: OSTEOPOROSIS
     Dosage: UNK
     Dates: start: 20060308
  9. ZOMETA [Suspect]
     Indication: BONE LOSS
  10. BONIVA [Suspect]
     Indication: OSTEOPOROSIS
     Dosage: 150 MG, QM
     Route: 048
     Dates: start: 20070218, end: 20110324
  11. BONIVA [Suspect]
     Indication: BONE LOSS
  12. INDERAL [Concomitant]
     Indication: HYPERTENSION
     Dosage: UNK
     Dates: start: 1977
  13. DIOVAN [Concomitant]
     Indication: HYPERTENSION
  14. AVAPRO [Concomitant]
     Indication: HYPERTENSION
     Dosage: 150 MG, UNK

REACTIONS (70)
  - Intramedullary rod insertion [Unknown]
  - Intramedullary rod insertion [Unknown]
  - Intraductal proliferative breast lesion [Unknown]
  - Cholecystectomy [Unknown]
  - Vaginal prolapse repair [Unknown]
  - Low turnover osteopathy [Not Recovered/Not Resolved]
  - Adverse drug reaction [Unknown]
  - Hypertensive encephalopathy [Recovered/Resolved]
  - Mental status changes [Recovered/Resolved]
  - Transient ischaemic attack [Recovered/Resolved]
  - Femur fracture [Unknown]
  - Femur fracture [Unknown]
  - Breast lump removal [Unknown]
  - Adverse event [Unknown]
  - Radiotherapy to breast [Unknown]
  - Hiatus hernia [Unknown]
  - Osteoarthritis [Unknown]
  - Biopsy breast [Unknown]
  - Rib fracture [Recovering/Resolving]
  - Osteopenia [Unknown]
  - Intervertebral disc degeneration [Unknown]
  - Fatigue [Unknown]
  - Cystitis interstitial [Unknown]
  - Sleep apnoea syndrome [Unknown]
  - Glaucoma [Unknown]
  - Blood cholesterol increased [Unknown]
  - Large intestine polyp [Unknown]
  - Nephrolithiasis [Unknown]
  - Diverticulitis [Unknown]
  - Neuropathy peripheral [Unknown]
  - Restless legs syndrome [Unknown]
  - Musculoskeletal disorder [Unknown]
  - Ovarian cyst [Unknown]
  - Vitamin B12 deficiency [Unknown]
  - Cataract operation [Unknown]
  - Tonsillectomy [Unknown]
  - Appendicectomy [Unknown]
  - Vitamin D deficiency [Unknown]
  - Thyroid cyst [Unknown]
  - Anaemia [Unknown]
  - Confusional state [Unknown]
  - Anxiety disorder [Unknown]
  - Joint injury [Unknown]
  - Intervertebral disc degeneration [Unknown]
  - Peripheral swelling [Unknown]
  - Spinal osteoarthritis [Unknown]
  - Balance disorder [Unknown]
  - Gastrointestinal disorder [Unknown]
  - Stress [Unknown]
  - Urinary tract infection [Unknown]
  - Atrophic vulvovaginitis [Unknown]
  - Dyspareunia [Unknown]
  - Ovarian cystectomy [Unknown]
  - Arthritis [Unknown]
  - Pelvic mass [Unknown]
  - Fluid retention [Unknown]
  - Adverse drug reaction [Unknown]
  - Cerebral ischaemia [Unknown]
  - Tachycardia [Unknown]
  - Device dislocation [Unknown]
  - Malignant hypertension [Unknown]
  - Asthenia [Unknown]
  - Rash [Unknown]
  - Pain in extremity [Unknown]
  - Pain in extremity [Unknown]
  - Dizziness [Recovered/Resolved]
  - Arthralgia [Unknown]
  - Myalgia [Unknown]
  - Arthralgia [Unknown]
  - Gastrooesophageal reflux disease [Unknown]
